FAERS Safety Report 4879881-3 (Version None)
Quarter: 2006Q1

REPORT INFORMATION
  Report Type: 
  Country: None (occurrence: None)
  Receive Date: 20060113
  Receipt Date: 20050930
  Transmission Date: 20060701
  Serious: Yes (Other)
  Sender: FDA-Public Use
  Company Number: PR-MERCK-0510USA01564

PATIENT
  Age: 43 Year
  Sex: Male
  Weight: 76 kg

DRUGS (4)
  1. VIOXX [Suspect]
     Indication: MYALGIA
     Route: 048
  2. VIOXX [Suspect]
     Route: 048
  3. VIOXX [Suspect]
     Route: 048
  4. ASPIRIN [Concomitant]
     Indication: ANALGESIC EFFECT
     Route: 065

REACTIONS (16)
  - ANGINA PECTORIS [None]
  - ARRHYTHMIA [None]
  - ASTHMA [None]
  - CARDIAC FAILURE [None]
  - CARDIOVASCULAR DISORDER [None]
  - CEREBRAL INFARCTION [None]
  - CEREBROVASCULAR ACCIDENT [None]
  - CHEST PAIN [None]
  - DEPRESSION [None]
  - EMBOLISM [None]
  - HYPERTENSION [None]
  - MYOCARDIAL INFARCTION [None]
  - ORGAN FAILURE [None]
  - PULMONARY EMBOLISM [None]
  - THROMBOSIS [None]
  - VASCULAR INJURY [None]
